FAERS Safety Report 7974853-4 (Version None)
Quarter: 2011Q4

REPORT INFORMATION
  Report Type: 
  Country: None (occurrence: None)
  Receive Date: 20111213
  Receipt Date: 20111205
  Transmission Date: 20120403
  Serious: Yes (Other)
  Sender: FDA-Public Use
  Company Number: US-RB-035232-11

PATIENT
  Age: 67 Year
  Sex: Male

DRUGS (1)
  1. SUBUTEX [Suspect]
     Indication: PRODUCT USED FOR UNKNOWN INDICATION
     Dosage: DOSING DETAILS UNKNOWN
     Route: 065
     Dates: end: 20111017

REACTIONS (7)
  - MALAISE [None]
  - ASTHENIA [None]
  - CONVULSION [None]
  - THINKING ABNORMAL [None]
  - HEMIPARESIS [None]
  - PARAESTHESIA [None]
  - MEMORY IMPAIRMENT [None]
